FAERS Safety Report 15857465 (Version 2)
Quarter: 2019Q1

REPORT INFORMATION
  Report Type: Spontaneous
  Country: TH (occurrence: TH)
  Receive Date: 20190123
  Receipt Date: 20190212
  Transmission Date: 20190417
  Serious: Yes (Other)
  Sender: FDA-Public Use
  Company Number: PHHY2019TH010593

PATIENT
  Age: 58 Year
  Sex: Male

DRUGS (1)
  1. ROSUVASTATIN SANDOZ [Suspect]
     Active Substance: ROSUVASTATIN CALCIUM
     Indication: DYSLIPIDAEMIA
     Dosage: 10 MG, QD
     Route: 048

REACTIONS (1)
  - Glomerular filtration rate decreased [Unknown]
